FAERS Safety Report 16074953 (Version 1)
Quarter: 2019Q1

REPORT INFORMATION
  Report Type: Spontaneous
  Country: US (occurrence: US)
  Receive Date: 20190315
  Receipt Date: 20190315
  Transmission Date: 20190418
  Serious: No
  Sender: FDA-Public Use
  Company Number: US-ASTRAZENECA-2019SE27856

PATIENT
  Sex: Female
  Weight: 68.9 kg

DRUGS (4)
  1. SYMBICORT [Suspect]
     Active Substance: BUDESONIDE\FORMOTEROL FUMARATE DIHYDRATE
     Indication: LUNG VOLUME REDUCTION SURGERY
     Dosage: SYMBICORT 1 PUFF ONCE A DAY
     Route: 055
  2. SYMBICORT [Suspect]
     Active Substance: BUDESONIDE\FORMOTEROL FUMARATE DIHYDRATE
     Indication: CHRONIC OBSTRUCTIVE PULMONARY DISEASE
     Dosage: 80/4.5 MCG 1 PUFF TWICE A DAY
     Route: 055
     Dates: start: 201311
  3. SYMBICORT [Suspect]
     Active Substance: BUDESONIDE\FORMOTEROL FUMARATE DIHYDRATE
     Indication: LUNG VOLUME REDUCTION SURGERY
     Dosage: 80/4.5 MCG 1 PUFF TWICE A DAY
     Route: 055
     Dates: start: 201311
  4. SYMBICORT [Suspect]
     Active Substance: BUDESONIDE\FORMOTEROL FUMARATE DIHYDRATE
     Indication: CHRONIC OBSTRUCTIVE PULMONARY DISEASE
     Dosage: SYMBICORT 1 PUFF ONCE A DAY
     Route: 055

REACTIONS (7)
  - Rhinorrhoea [Unknown]
  - Nasal congestion [Unknown]
  - Product use in unapproved indication [Unknown]
  - Sinusitis [Unknown]
  - Off label use [Unknown]
  - Mucosal inflammation [Unknown]
  - Lacrimation increased [Unknown]
